FAERS Safety Report 18273669 (Version 1)
Quarter: 2020Q3

REPORT INFORMATION
  Report Type: Spontaneous
  Country: US (occurrence: US)
  Receive Date: 20200916
  Receipt Date: 20200916
  Transmission Date: 20201103
  Serious: Yes (Disabling, Other)
  Sender: FDA-Public Use
  Company Number: None

PATIENT
  Age: 65 Year
  Sex: Female
  Weight: 67.59 kg

DRUGS (3)
  1. EASYTOUCH ALCOHOL PREP PADS STERILE [Suspect]
     Active Substance: ISOPROPYL ALCOHOL
     Indication: COVID-19 PROPHYLAXIS
     Route: 061
     Dates: start: 2020
  2. ABILIFY [Concomitant]
     Active Substance: ARIPIPRAZOLE
  3. HERBAL TEAS OTC [Concomitant]

REACTIONS (4)
  - Dizziness [None]
  - Balance disorder [None]
  - Application site pain [None]
  - Application site erythema [None]
